FAERS Safety Report 25543971 (Version 2)
Quarter: 2025Q4

REPORT INFORMATION
  Report Type: Report from Study
  Country: EU (occurrence: EU)
  Receive Date: 20250711
  Receipt Date: 20251002
  Transmission Date: 20260117
  Serious: Yes (Hospitalization, Other)
  Sender: CELLTRION
  Company Number: EU-SA-2024SA372076

PATIENT

DRUGS (11)
  1. TRASTUZUMAB [Suspect]
     Active Substance: TRASTUZUMAB
     Indication: Neoplasm malignant
     Dosage: 440 MG EVERY 22 DAYS
     Dates: start: 20241120, end: 20241120
  2. OXALIPLATIN [Suspect]
     Active Substance: OXALIPLATIN
     Indication: HER2 positive colorectal cancer
     Dosage: 135 MG, QCY, 1 DOSE EVERY 1 CYCLIC
     Route: 042
     Dates: start: 20240512, end: 20240512
  3. TUCATINIB [Suspect]
     Active Substance: TUCATINIB
     Indication: HER2 positive colorectal cancer
     Dosage: 600 MG, QD
     Route: 048
     Dates: start: 20241119, end: 20241210
  4. LEVOLEUCOVORIN [Suspect]
     Active Substance: LEVOLEUCOVORIN
     Indication: HER2 positive colorectal cancer
     Dosage: 636 MG, 1X, TOTAL
     Route: 042
     Dates: start: 20241205, end: 20241205
  5. FLUOROURACIL [Suspect]
     Active Substance: FLUOROURACIL
     Indication: HER2 positive colorectal cancer
     Dosage: 540 MG, 1X, TOTAL
     Route: 042
     Dates: start: 20241205, end: 20241205
  6. FLUOROURACIL [Suspect]
     Active Substance: FLUOROURACIL
     Dosage: 3200 MG, 1X, TOTAL
     Route: 042
     Dates: start: 20241205, end: 20241207
  7. LOPERAMIDE [Suspect]
     Active Substance: LOPERAMIDE
     Indication: HER2 positive colorectal cancer
     Dosage: 4 MG EVERY 8 HOURS
     Route: 048
     Dates: start: 20241205, end: 20241210
  8. LOPERAMIDE [Suspect]
     Active Substance: LOPERAMIDE
     Indication: Prophylaxis against diarrhoea
  9. PANTOPRAZOLE [Concomitant]
     Active Substance: PANTOPRAZOLE
     Indication: Prophylaxis
     Dosage: UNK
     Route: 048
     Dates: start: 20240708
  10. ENOXAPARIN SODIUM [Concomitant]
     Active Substance: ENOXAPARIN SODIUM
     Indication: Large intestine anastomosis
     Dosage: UNK
     Route: 058
     Dates: start: 20241111
  11. ACETAMINOPHEN [Concomitant]
     Active Substance: ACETAMINOPHEN
     Indication: Large intestine anastomosis
     Dosage: UNK
     Dates: start: 20241111

REACTIONS (1)
  - Syncope [Recovered/Resolved]

NARRATIVE: CASE EVENT DATE: 20241210
